FAERS Safety Report 24399900 (Version 2)
Quarter: 2024Q4

REPORT INFORMATION
  Report Type: Report from Study
  Country: EG (occurrence: EG)
  Receive Date: 20241005
  Receipt Date: 20241031
  Transmission Date: 20250115
  Serious: Yes (Other)
  Sender: ABBVIE
  Company Number: EG-ABBVIE-5947510

PATIENT
  Age: 60 Year
  Sex: Female

DRUGS (3)
  1. RINVOQ [Suspect]
     Active Substance: UPADACITINIB
     Indication: Rheumatoid arthritis
     Dosage: FORM STRENGTH: 15 MG?ONE TABLET ONE DAY
     Route: 048
     Dates: start: 20240501, end: 202406
  2. ARIMIDEX [Suspect]
     Active Substance: ANASTROZOLE
     Indication: Cancer hormonal therapy
     Route: 065
     Dates: start: 202406
  3. KISQALI [Suspect]
     Active Substance: RIBOCICLIB
     Indication: Cancer hormonal therapy
     Route: 065
     Dates: start: 202406

REACTIONS (7)
  - Metastases to bone [Unknown]
  - Immunodeficiency [Recovering/Resolving]
  - Breast cancer metastatic [Unknown]
  - Diarrhoea [Recovering/Resolving]
  - Rheumatic disorder [Not Recovered/Not Resolved]
  - Anaemia [Recovering/Resolving]
  - Leukopenia [Recovering/Resolving]

NARRATIVE: CASE EVENT DATE: 20240601
